FAERS Safety Report 8309653-9 (Version None)
Quarter: 2012Q2

REPORT INFORMATION
  Report Type: 
  Country: None (occurrence: None)
  Receive Date: 20120423
  Receipt Date: 20120417
  Transmission Date: 20120825
  Serious: Yes (Hospitalization, Other)
  Sender: FDA-Public Use
  Company Number: GER/ITL/12/0023905

PATIENT
  Age: 91 Year
  Sex: Female

DRUGS (12)
  1. GLYBURIDE [Suspect]
     Indication: TYPE 2 DIABETES MELLITUS
     Dosage: 2.5 MG, 3 IN 1 D, ORAL
     Route: 048
  2. METFORMIN HCL [Suspect]
     Indication: TYPE 2 DIABETES MELLITUS
     Dosage: 400 MG, 3 IN 1 D, ORAL
  3. HYDROMORPHONE HCL [Suspect]
     Indication: PRODUCT USED FOR UNKNOWN INDICATION
     Dosage: ORAL
     Route: 048
  4. LEVOFLOXACIN [Suspect]
     Indication: BACTERIAL INFECTION
     Dosage: 500 MG, ORAL
     Route: 048
  5. BUPRENORPHINE [Suspect]
     Indication: PAIN
     Dosage: 35 MCG, TRANSDERMAL
     Route: 062
  6. LANSOPRAZOLE [Concomitant]
  7. ASPIRIN [Concomitant]
  8. TRAMADOL HCL [Suspect]
     Indication: PRODUCT USED FOR UNKNOWN INDICATION
  9. NADROPARIN (NADROPARIN) [Suspect]
     Indication: PRODUCT USED FOR UNKNOWN INDICATION
     Dosage: 3800 UL, SUBCUTANEOUS
     Route: 058
  10. INSULIN (INSULIN) [Concomitant]
  11. ENALAPRIL MALEATE [Suspect]
     Indication: HYPERTENSION
     Dosage: 20 MG, ORAL
     Route: 048
  12. HYDROCHLOROTHIAZIDE [Concomitant]

REACTIONS (5)
  - HYPOGLYCAEMIC COMA [None]
  - LOCALISED INFECTION [None]
  - HYPOGLYCAEMIA [None]
  - DRUG INTERACTION [None]
  - ARTERIAL THROMBOSIS LIMB [None]
